FAERS Safety Report 6290665 (Version 21)
Quarter: 2013Q3

REPORT INFORMATION
  Report Type: Spontaneous
  Country: US (occurrence: US)
  Receive Date: 20070418
  Receipt Date: 20130827
  Transmission Date: 20140515
  Serious: Yes (Hospitalization, Other)
  Sender: FDA-Public Use
  Company Number: PHEH2007US04226

PATIENT
  Age: 52 Year
  Sex: Female
  Weight: 65.77 kg

DRUGS (34)
  1. AREDIA [Suspect]
     Indication: BREAST CANCER
     Dosage: 90 MG, QMO
  2. ZOMETA [Suspect]
     Indication: BREAST CANCER
     Dosage: 4 MG, QMO
  3. CLARITIN [Concomitant]
  4. ZYRTEC [Concomitant]
  5. XANAX [Concomitant]
  6. PAXIL [Concomitant]
  7. LASIX [Concomitant]
  8. LANOXIN [Concomitant]
  9. ADVAIR [Concomitant]
  10. AROMASIN [Concomitant]
  11. COUMADIN [Concomitant]
  12. AMBIEN [Concomitant]
  13. MAXAIR [Concomitant]
  14. DECADRON                                /CAN/ [Concomitant]
  15. SYMBICORT TURBUHALER ^DRACO^ [Concomitant]
  16. TYLENOL [Concomitant]
  17. VICODIN [Concomitant]
  18. XOPENEX [Concomitant]
  19. NAVELBINE ^ASTA MEDICA^ [Concomitant]
  20. SPIRIVA ^BOEHRINGER INGELHEIM^ [Concomitant]
  21. LUNESTA [Concomitant]
  22. BENADRYL ^PFIZER WARNER-LAMBERT^ [Concomitant]
  23. LYRICA [Concomitant]
  24. TYKERB [Concomitant]
  25. ZOFRAN [Concomitant]
  26. GENTAMICIN [Concomitant]
  27. CLINDAMYCIN [Concomitant]
  28. MIRAPEX ^BOEHRINGER INGELHEIM^ [Concomitant]
  29. CARBOPLATIN [Concomitant]
  30. PRILOSEC [Concomitant]
     Dosage: 20 MG, UNK
  31. NEURONTIN [Concomitant]
  32. DURAGESIC [Concomitant]
  33. GENTEAL                            /00445101/ [Concomitant]
  34. ARTIFICIAL TEARS [Concomitant]

REACTIONS (145)
  - Pancytopenia [Unknown]
  - Osteonecrosis of jaw [Unknown]
  - Bone disorder [Unknown]
  - Infection [Unknown]
  - Gingivitis [Unknown]
  - Deformity [Unknown]
  - Pain [Unknown]
  - Hypophagia [Unknown]
  - Emotional distress [Unknown]
  - Anxiety [Unknown]
  - Decreased interest [Unknown]
  - Osteomyelitis [Unknown]
  - Metastases to spine [Unknown]
  - Metastases to pleura [Unknown]
  - Metastases to heart [Unknown]
  - Pericardial effusion [Unknown]
  - Pleural effusion [Unknown]
  - Atrophic vulvovaginitis [Unknown]
  - Blood urine present [Unknown]
  - Osteitis [Unknown]
  - Primary sequestrum [Unknown]
  - Impaired healing [Unknown]
  - Bone loss [Unknown]
  - Hypoaesthesia [Unknown]
  - Neutropenia [Unknown]
  - Neuropathy peripheral [Unknown]
  - Sensation of heaviness [Unknown]
  - Paraesthesia [Unknown]
  - Pain in jaw [Unknown]
  - Atelectasis [Unknown]
  - Lung infiltration [Unknown]
  - Lung hyperinflation [Unknown]
  - Metastases to bone [Unknown]
  - Bone pain [Unknown]
  - Asthma [Unknown]
  - Dyspnoea [Unknown]
  - Sleep apnoea syndrome [Unknown]
  - Insomnia [Unknown]
  - Tachycardia [Unknown]
  - Heart rate increased [Unknown]
  - Depression [Unknown]
  - Syncope [Unknown]
  - Blood lactate dehydrogenase increased [Unknown]
  - Weight decreased [Unknown]
  - Mitral valve incompetence [Unknown]
  - Tricuspid valve incompetence [Unknown]
  - Blood alkaline phosphatase increased [Unknown]
  - Alanine aminotransferase increased [Unknown]
  - Aspartate aminotransferase increased [Unknown]
  - Neck pain [Unknown]
  - Nausea [Unknown]
  - Dyspepsia [Unknown]
  - Anaemia [Unknown]
  - Dizziness [Unknown]
  - Headache [Unknown]
  - Asthenia [Unknown]
  - Joint stiffness [Unknown]
  - Stress [Unknown]
  - Chest pain [Unknown]
  - Orthopnoea [Unknown]
  - Oedema peripheral [Unknown]
  - Malaise [Unknown]
  - Pyrexia [Unknown]
  - Hypersomnia [Unknown]
  - Snoring [Unknown]
  - Vision blurred [Unknown]
  - Lacrimation increased [Unknown]
  - Sinus congestion [Unknown]
  - Rash erythematous [Unknown]
  - Fatigue [Unknown]
  - Dysphonia [Unknown]
  - Arthralgia [Unknown]
  - Constipation [Unknown]
  - Intermittent claudication [Unknown]
  - Exostosis [Unknown]
  - Mass [Unknown]
  - Abdominal distension [Unknown]
  - Pelvic pain [Unknown]
  - Sensation of pressure [Unknown]
  - Stomatitis [Unknown]
  - Gingival bleeding [Unknown]
  - Breath odour [Unknown]
  - Decreased appetite [Unknown]
  - Change of bowel habit [Unknown]
  - Joint swelling [Unknown]
  - Myalgia [Unknown]
  - Gait disturbance [Unknown]
  - Amnesia [Unknown]
  - Confusional state [Unknown]
  - Haemorrhagic diathesis [Unknown]
  - Nervousness [Unknown]
  - Dry eye [Unknown]
  - Keratitis [Unknown]
  - Adenocarcinoma [Unknown]
  - Second primary malignancy [Unknown]
  - Cushingoid [Unknown]
  - Osteosclerosis [Unknown]
  - Pathological fracture [Unknown]
  - Intervertebral disc protrusion [Unknown]
  - Vertebral foraminal stenosis [Unknown]
  - Pneumonitis [Unknown]
  - Pneumothorax [Unknown]
  - Dehydration [Unknown]
  - Productive cough [Unknown]
  - Sepsis [Unknown]
  - Hypokalaemia [Unknown]
  - Wound [Unknown]
  - Gastrooesophageal reflux disease [Unknown]
  - Tachypnoea [Unknown]
  - Convulsion [Unknown]
  - Deep vein thrombosis [Unknown]
  - Atrial fibrillation [Unknown]
  - Abdominal pain [Unknown]
  - Thrombosis [Unknown]
  - Aortic valve incompetence [Unknown]
  - Bone marrow oedema [Unknown]
  - Soft tissue inflammation [Unknown]
  - Arthritis [Unknown]
  - Leukopenia [Unknown]
  - Cholelithiasis [Unknown]
  - Mucosal ulceration [Unknown]
  - Mouth ulceration [Unknown]
  - Heart rate irregular [Unknown]
  - Goitre [Unknown]
  - Dysphagia [Unknown]
  - Spinal osteoarthritis [Unknown]
  - Bacteraemia [Unknown]
  - Febrile neutropenia [Unknown]
  - Respiratory failure [Unknown]
  - Mitral valve calcification [Unknown]
  - Visual acuity reduced [Unknown]
  - Chronic obstructive pulmonary disease [Unknown]
  - Bronchiectasis [Unknown]
  - Cystic fibrosis [Unknown]
  - Nervous system disorder [Unknown]
  - Road traffic accident [Unknown]
  - Tinnitus [Unknown]
  - Intervertebral disc space narrowing [Unknown]
  - Laceration [Unknown]
  - Splenic lesion [Unknown]
  - Splenic cyst [Unknown]
  - Gingival pain [Unknown]
  - Epistaxis [Unknown]
  - Renal failure acute [Unknown]
  - Chest discomfort [Unknown]
